FAERS Safety Report 24017468 (Version 2)
Quarter: 2024Q3

REPORT INFORMATION
  Report Type: Spontaneous
  Country: JP (occurrence: JP)
  Receive Date: 20240627
  Receipt Date: 20240708
  Transmission Date: 20241016
  Serious: Yes (Hospitalization, Other)
  Sender: SETON
  Company Number: JP-SETONPHARMA-2024SETSPO00002

PATIENT
  Age: 26 Year
  Sex: Female
  Weight: 67.7 kg

DRUGS (11)
  1. PREDNISOLONE [Suspect]
     Active Substance: PREDNISOLONE
     Indication: Takayasu^s arteritis
     Dates: start: 20201208, end: 20210512
  2. PREDNISOLONE [Suspect]
     Active Substance: PREDNISOLONE
     Route: 048
     Dates: start: 20210513, end: 20210609
  3. PREDNISOLONE [Suspect]
     Active Substance: PREDNISOLONE
     Route: 048
     Dates: start: 20210513, end: 20240523
  4. UPADACITINIB [Suspect]
     Active Substance: UPADACITINIB
     Indication: Takayasu^s arteritis
     Route: 048
     Dates: start: 20211030, end: 20240523
  5. Mercazole (Thiamazole) [Concomitant]
     Dates: start: 2015
  6. SULFAMETHOXAZOLE\TRIMETHOPRIM [Concomitant]
     Active Substance: SULFAMETHOXAZOLE\TRIMETHOPRIM
     Indication: Infection prophylaxis
     Dosage: 0.5 DOSAGE FORM
     Dates: start: 20210120
  7. ALFACALCIDOL [Concomitant]
     Active Substance: ALFACALCIDOL
     Dates: start: 20201205
  8. AMBROXOL HYDROCHLORIDE [Concomitant]
     Active Substance: AMBROXOL HYDROCHLORIDE
     Dosage: 1 DOSAGE FORM
     Dates: start: 20240207, end: 20240313
  9. CYCLOSPORINE [Concomitant]
     Active Substance: CYCLOSPORINE
     Indication: Takayasu^s arteritis
     Dates: start: 20201211, end: 20210330
  10. COMIRNATY [Concomitant]
     Indication: Prophylaxis
     Dates: start: 20211022, end: 20211022
  11. COMIRNATY [Concomitant]
     Dates: start: 20211001, end: 20211001

REACTIONS (2)
  - Condition aggravated [Not Recovered/Not Resolved]
  - Takayasu^s arteritis [Not Recovered/Not Resolved]

NARRATIVE: CASE EVENT DATE: 20240523
